FAERS Safety Report 4833634-0 (Version None)
Quarter: 2005Q4

REPORT INFORMATION
  Report Type: 
  Country: None (occurrence: None)
  Receive Date: 20051121
  Receipt Date: 20051109
  Transmission Date: 20060501
  Serious: Yes (Other)
  Sender: FDA-Public Use
  Company Number: PHMT2005CA00595

PATIENT

DRUGS (1)
  1. CLOZARIL [Suspect]

REACTIONS (2)
  - HELICOBACTER INFECTION [None]
  - ULCER [None]
